FAERS Safety Report 20530779 (Version 1)
Quarter: 2022Q1

REPORT INFORMATION
  Report Type: Spontaneous
  Country: CO (occurrence: CO)
  Receive Date: 20220301
  Receipt Date: 20220301
  Transmission Date: 20220424
  Serious: No
  Sender: FDA-Public Use
  Company Number: CO-PFIZER INC-2020250021

PATIENT
  Age: 3 Year
  Sex: Female
  Weight: 13 kg

DRUGS (1)
  1. GENOTROPIN [Suspect]
     Active Substance: SOMATROPIN
     Indication: Growth hormone deficiency
     Dosage: 0.6 MG, 1X/DAY
     Route: 058
     Dates: start: 202003, end: 20200618

REACTIONS (4)
  - Device physical property issue [Unknown]
  - Drug dose omission by device [Unknown]
  - Poor quality device used [Unknown]
  - Product dose omission issue [Unknown]

NARRATIVE: CASE EVENT DATE: 20200618
